FAERS Safety Report 17480696 (Version 4)
Quarter: 2020Q2

REPORT INFORMATION
  Report Type: Spontaneous
  Country: IT (occurrence: IT)
  Receive Date: 20200301
  Receipt Date: 20200526
  Transmission Date: 20200713
  Serious: Yes (Other)
  Sender: FDA-Public Use
  Company Number: IT-CELLTRION INC.-2020IT019759

PATIENT

DRUGS (5)
  1. RITUXIMAB (UNKNOWN) [Suspect]
     Active Substance: RITUXIMAB
     Dosage: 70 MG/M2 AT TIME 0
  2. RITUXIMAB (UNKNOWN) [Suspect]
     Active Substance: RITUXIMAB
     Dosage: 750 MG/M2 (AFTER 15 DAYS FROM THE FIRST ADMINISTRATION)
  3. PREDNISONE. [Suspect]
     Active Substance: PREDNISONE
     Indication: SYSTEMIC LUPUS ERYTHEMATOSUS
     Dosage: 2 MG/KG
     Route: 048
  4. RITUXIMAB (UNKNOWN) [Suspect]
     Active Substance: RITUXIMAB
     Indication: SYSTEMIC LUPUS ERYTHEMATOSUS
     Dosage: 750 MG/M2 AT TIME 0, THEN A SECOND DOSE AFTER 15 DAYS
  5. PREDNISONE. [Suspect]
     Active Substance: PREDNISONE
     Indication: IMMUNE THROMBOCYTOPENIA
     Dosage: 1.5 MG/KG DAILY

REACTIONS (5)
  - Disease recurrence [Recovered/Resolved]
  - Thrombocytopenia [Recovered/Resolved]
  - Deep vein thrombosis [Recovered/Resolved]
  - Drug resistance [Unknown]
  - Product use in unapproved indication [Unknown]
